FAERS Safety Report 20798240 (Version 4)
Quarter: 2024Q2

REPORT INFORMATION
  Report Type: Spontaneous
  Country: US (occurrence: US)
  Receive Date: 20220507
  Receipt Date: 20240425
  Transmission Date: 20240716
  Serious: Yes (Other)
  Sender: FDA-Public Use
  Company Number: US-SANOFI-01084501

PATIENT
  Age: 76 Year
  Sex: Male

DRUGS (7)
  1. APIDRA [Suspect]
     Active Substance: INSULIN GLULISINE
     Indication: Type 1 diabetes mellitus
     Dosage: UNK
  2. ADMELOG [Suspect]
     Active Substance: INSULIN LISPRO
     Indication: Blood glucose
     Dosage: UNK
     Dates: start: 2017
  3. LANTUS [Concomitant]
     Active Substance: INSULIN GLARGINE
     Dosage: 4 IU
  4. LANTUS [Concomitant]
     Active Substance: INSULIN GLARGINE
  5. NOVOLOG [Concomitant]
     Active Substance: INSULIN ASPART
  6. HUMALOG [Concomitant]
     Active Substance: INSULIN LISPRO
  7. LEVEMIR [Concomitant]
     Active Substance: INSULIN DETEMIR

REACTIONS (5)
  - Prostate cancer [Unknown]
  - Blood glucose increased [Unknown]
  - Therapeutic product effect delayed [Unknown]
  - Product storage error [Unknown]
  - Drug ineffective [Unknown]
